FAERS Safety Report 7603682-6 (Version None)
Quarter: 2011Q3

REPORT INFORMATION
  Report Type: 
  Country: None (occurrence: None)
  Receive Date: 20110712
  Receipt Date: 20110706
  Transmission Date: 20111222
  Serious: No
  Sender: FDA-Public Use
  Company Number: US-PFIZER INC-2011131251

PATIENT
  Sex: Female

DRUGS (4)
  1. GEODON [Concomitant]
     Indication: BIPOLAR DISORDER
     Dosage: UNK
  2. COGENTIN [Concomitant]
     Indication: MUSCLE TIGHTNESS
     Dosage: UNK
  3. TRAZODONE [Concomitant]
     Indication: SLEEP DISORDER
     Dosage: UNK
  4. PRISTIQ [Suspect]
     Indication: DEPRESSION
     Dosage: 100MG DAILY
     Route: 048
     Dates: start: 20101026

REACTIONS (1)
  - BRUXISM [None]
